FAERS Safety Report 7419080-4 (Version None)
Quarter: 2011Q2

REPORT INFORMATION
  Report Type: 
  Country: None (occurrence: None)
  Receive Date: 20110415
  Receipt Date: 20110414
  Transmission Date: 20111010
  Serious: Yes (Life-Threatening, Hospitalization)
  Sender: FDA-Public Use
  Company Number: ZA-JNJFOC-20100808577

PATIENT
  Age: 84 Year
  Sex: Female

DRUGS (6)
  1. SPORANOX [Suspect]
     Indication: ORAL CANDIDIASIS
     Route: 065
  2. VERAHEXAL [Concomitant]
     Route: 065
  3. LANOXIN [Concomitant]
     Route: 065
  4. ENAP [Concomitant]
     Route: 065
  5. WARFARIN [Interacting]
     Indication: ATRIAL FIBRILLATION
     Route: 065
  6. ELTROXIN [Concomitant]
     Route: 065

REACTIONS (2)
  - HAEMORRHAGE [None]
  - DRUG INTERACTION [None]
